FAERS Safety Report 20818062 (Version 1)
Quarter: 2022Q2

REPORT INFORMATION
  Report Type: Spontaneous
  Country: US (occurrence: US)
  Receive Date: 20220512
  Receipt Date: 20220512
  Transmission Date: 20220721
  Serious: No
  Sender: FDA-Public Use
  Company Number: US-PFIZER INC-2021803638

PATIENT
  Age: 83 Year

DRUGS (2)
  1. MORPHINE SULFATE [Suspect]
     Active Substance: MORPHINE SULFATE
  2. BACITRACIN ZINC [Suspect]
     Active Substance: BACITRACIN ZINC
     Dosage: UNK

REACTIONS (1)
  - Drug hypersensitivity [Unknown]
